FAERS Safety Report 16234248 (Version 1)
Quarter: 2019Q2

REPORT INFORMATION
  Report Type: Spontaneous
  Country: US (occurrence: US)
  Receive Date: 20190321
  Receipt Date: 20190321
  Transmission Date: 20190711
  Serious: No
  Sender: FDA-Public Use
  Company Number: None

PATIENT

DRUGS (1)
  1. TACROLIMUS CAP 1MG [Suspect]
     Active Substance: TACROLIMUS
     Route: 048
     Dates: start: 20160812

REACTIONS (3)
  - Influenza like illness [None]
  - Product dose omission [None]
  - Renal pain [None]

NARRATIVE: CASE EVENT DATE: 20190321
